FAERS Safety Report 4421417-5 (Version None)
Quarter: 2004Q3

REPORT INFORMATION
  Report Type: 
  Country: None (occurrence: None)
  Receive Date: 20040706
  Receipt Date: 20040416
  Transmission Date: 20050211
  Serious: No
  Sender: FDA-Public Use
  Company Number: 235648

PATIENT
  Age: 67 Year
  Sex: Male
  Weight: 75.3 kg

DRUGS (8)
  1. NOVOLOG [Suspect]
     Indication: INSULIN-REQUIRING TYPE II DIABETES MELLITUS
     Dosage: 15 IU, QD, SUBCUTANEOUS;  20 IU, QD, SUBCUTANEOUS
     Route: 058
     Dates: start: 20040217, end: 20040228
  2. NOVOLOG [Suspect]
     Indication: INSULIN-REQUIRING TYPE II DIABETES MELLITUS
     Dosage: 15 IU, QD, SUBCUTANEOUS;  20 IU, QD, SUBCUTANEOUS
     Route: 058
     Dates: start: 20040228
  3. LANTUS [Concomitant]
  4. ACCUPRIL [Concomitant]
  5. PROZAC [Concomitant]
  6. PRILOSEC [Concomitant]
  7. COUMADIN [Concomitant]
  8. DIGOXIN [Concomitant]

REACTIONS (2)
  - BLOOD GLUCOSE INCREASED [None]
  - DEHYDRATION [None]
